FAERS Safety Report 10196741 (Version 1)
Quarter: 2014Q2

REPORT INFORMATION
  Report Type: Spontaneous
  Country: US (occurrence: None)
  Receive Date: 20140523
  Receipt Date: 20140523
  Transmission Date: 20141212
  Serious: Yes (Death, Hospitalization)
  Sender: FDA-Public Use
  Company Number: None

PATIENT
  Age: 2 Year
  Sex: Male

DRUGS (6)
  1. CYCLOPHOSPHAMIDE [Suspect]
     Dates: start: 20140204
  2. CYTARABINE [Suspect]
     Dates: start: 20140214
  3. MERCAPTOPURINE [Suspect]
     Dates: start: 20140217
  4. METHOTREXATE [Suspect]
     Dates: start: 20140116
  5. PEG-L-ASPARGINASE [Suspect]
     Dates: start: 20140218
  6. VINCRISTINE SULFATE [Suspect]
     Dates: start: 20140225

REACTIONS (10)
  - Biliary dilatation [None]
  - Hyperbilirubinaemia [None]
  - Abdominal pain [None]
  - Lymphadenopathy [None]
  - Infection [None]
  - Cholangitis [None]
  - Disseminated intravascular coagulation [None]
  - Liver injury [None]
  - Abdominal distension [None]
  - Ascites [None]
